FAERS Safety Report 7875880-8 (Version None)
Quarter: 2011Q4

REPORT INFORMATION
  Report Type: 
  Country: None (occurrence: None)
  Receive Date: 20111031
  Receipt Date: 20111020
  Transmission Date: 20120403
  Serious: Yes (Hospitalization)
  Sender: FDA-Public Use
  Company Number: US-ASTRAZENECA-2011SE63797

PATIENT
  Age: 46 Year
  Sex: Male

DRUGS (4)
  1. TOPROL-XL [Suspect]
     Route: 048
  2. OMEPRAZOLE [Concomitant]
  3. LORAZEPAM [Concomitant]
  4. TRAMADOL HCL [Concomitant]

REACTIONS (3)
  - ILL-DEFINED DISORDER [None]
  - VARICES OESOPHAGEAL [None]
  - ANXIETY [None]
